FAERS Safety Report 10495193 (Version 1)
Quarter: 2014Q3

REPORT INFORMATION
  Report Type: Spontaneous
  Country: US (occurrence: None)
  Receive Date: 20140815
  Receipt Date: 20140815
  Transmission Date: 20150326
  Serious: Yes (Other)
  Sender: FDA-Public Use
  Company Number: ADR-201400614

PATIENT
  Age: 62 Year
  Sex: Female

DRUGS (2)
  1. LIORESAL [Suspect]
     Active Substance: BACLOFEN
     Indication: PAIN
  2. MORPHINE INTRATHECAL 50 MG/ML [Suspect]
     Active Substance: MORPHINE

REACTIONS (1)
  - Implant site pain [None]

NARRATIVE: CASE EVENT DATE: 20130904
